FAERS Safety Report 5280452-8 (Version None)
Quarter: 2007Q1

REPORT INFORMATION
  Report Type: 
  Country: None (occurrence: None)
  Receive Date: 20070329
  Receipt Date: 20070320
  Transmission Date: 20070707
  Serious: Yes (Hospitalization, Other)
  Sender: FDA-Public Use
  Company Number: GB-AVENTIS-200712484GDDC

PATIENT
  Age: 32 Year
  Sex: Female

DRUGS (2)
  1. METRONIDAZOLE [Suspect]
     Dates: start: 20061123, end: 20061125
  2. OFLOXACIN [Suspect]
     Dates: start: 20061123, end: 20061125

REACTIONS (1)
  - ANAPHYLACTIC REACTION [None]
